FAERS Safety Report 7500059-9 (Version None)
Quarter: 2011Q2

REPORT INFORMATION
  Report Type: 
  Country: None (occurrence: None)
  Receive Date: 20110524
  Receipt Date: 20110518
  Transmission Date: 20111010
  Serious: Yes (Death, Hospitalization)
  Sender: FDA-Public Use
  Company Number: JP-BAYER-200913161BYL

PATIENT
  Age: 63 Year
  Sex: Female
  Weight: 58 kg

DRUGS (19)
  1. NEXAVAR [Suspect]
     Indication: RENAL CELL CARCINOMA STAGE IV
     Dosage: 400 MG, BID
     Route: 048
     Dates: start: 20090812, end: 20090829
  2. LOXONIN [Concomitant]
     Dosage: 60 MG, TID
     Route: 048
     Dates: start: 20090819
  3. MUCOSTA [Concomitant]
     Dosage: 100 MG, TID
     Route: 048
     Dates: start: 20090819
  4. ATARAX [Concomitant]
     Dosage: 25 ML (DAILY DOSE), , INTRAMUSCULAR
     Route: 030
     Dates: start: 20090828
  5. EBRANTIL [Concomitant]
     Dosage: 15 MG, BID
     Route: 048
     Dates: start: 20090819
  6. SHAKUYAKUKANZOUTOU [Concomitant]
     Dosage: 2.5 G, TID
     Route: 048
     Dates: start: 20090821
  7. TOFRANIL [Concomitant]
     Dosage: 25 MG, QD
     Route: 048
     Dates: start: 20090824
  8. LANSOPRAZOLE [Concomitant]
     Dosage: 15 MG, BID
     Route: 048
     Dates: start: 20090828
  9. OXYCODONE HYDROCHLORIDE [Concomitant]
     Indication: PAIN
     Dosage: 5 MG, PRN
     Route: 048
     Dates: start: 20090903
  10. OXYCONTIN [Concomitant]
     Dosage: 5 MG, BID
     Route: 048
     Dates: start: 20090828
  11. VOLTAREN [Concomitant]
     Dosage: 25 MG (DAILY DOSE), , RECTAL
     Route: 054
     Dates: start: 20090828
  12. PENTAZOCINE LACTATE [Concomitant]
     Dosage: 15 MG (DAILY DOSE), , SUBCUTANEOUS
     Route: 058
     Dates: start: 20090828
  13. PURSENNID [Concomitant]
     Dosage: 24 MG, HS
     Route: 048
     Dates: start: 20090819
  14. LENDORMIN [Concomitant]
     Indication: INSOMNIA
     Dosage: 0.25 MG, PRN
     Route: 048
     Dates: start: 20090824
  15. MAGNESIUM SULFATE [Concomitant]
     Dosage: 330 MG, TID
     Route: 048
     Dates: start: 20090819
  16. FAMOTIDINE [Concomitant]
     Dosage: 20 MG, QD
     Route: 048
     Dates: start: 20090819
  17. ALLOID G [Concomitant]
     Dosage: 20 ML, TID
     Route: 048
     Dates: start: 20090819
  18. KERATINAMIN [Concomitant]
     Dosage: UNK
     Route: 061
     Dates: start: 20090821
  19. LAXOBERON [Concomitant]
     Dosage: DAILY DOSE 10 ML
     Route: 048
     Dates: start: 20090902

REACTIONS (2)
  - ACUTE RESPIRATORY FAILURE [None]
  - RENAL CELL CARCINOMA [None]
